FAERS Safety Report 25417700 (Version 2)
Quarter: 2025Q2

REPORT INFORMATION
  Report Type: Spontaneous
  Country: CN (occurrence: CN)
  Receive Date: 20250610
  Receipt Date: 20250616
  Transmission Date: 20250716
  Serious: Yes (Death, Life-Threatening)
  Sender: PFIZER
  Company Number: CN-PFIZER INC-PV202500068733

PATIENT
  Age: 86 Year
  Sex: Male

DRUGS (1)
  1. TIGECYCLINE [Suspect]
     Active Substance: TIGECYCLINE
     Indication: Anti-infective therapy
     Dosage: 50 MG, 2X/DAY
     Route: 041
     Dates: start: 20250519, end: 20250529

REACTIONS (3)
  - Coagulopathy [Fatal]
  - Blood fibrinogen decreased [Fatal]
  - Respiratory failure [Fatal]

NARRATIVE: CASE EVENT DATE: 20250501
